FAERS Safety Report 15206623 (Version 1)
Quarter: 2018Q3

REPORT INFORMATION
  Report Type: Spontaneous
  Country: US (occurrence: US)
  Receive Date: 20180727
  Receipt Date: 20180727
  Transmission Date: 20181010
  Serious: No
  Sender: FDA-Public Use
  Company Number: US-PFIZER INC-2018302072

PATIENT
  Age: 75 Year
  Sex: Female

DRUGS (1)
  1. GENOTROPIN MQ [Suspect]
     Active Substance: SOMATROPIN
     Dosage: 0.4 MG, DAILY

REACTIONS (9)
  - Blood chloride increased [Unknown]
  - Blood creatinine increased [Unknown]
  - Blood glucose increased [Unknown]
  - Blood thyroid stimulating hormone decreased [Unknown]
  - Albumin globulin ratio increased [Unknown]
  - Glycosylated haemoglobin increased [Unknown]
  - Thyroxine free abnormal [Unknown]
  - Blood alkaline phosphatase decreased [Unknown]
  - Glomerular filtration rate decreased [Unknown]
